FAERS Safety Report 6535835-2 (Version None)
Quarter: 2010Q1

REPORT INFORMATION
  Report Type: 
  Country: None (occurrence: None)
  Receive Date: 20100106
  Receipt Date: 20091223
  Transmission Date: 20100710
  Serious: Yes (Death, Hospitalization)
  Sender: FDA-Public Use
  Company Number: 2009AC000318

PATIENT
  Age: 64 Year
  Sex: Male

DRUGS (103)
  1. DIGOXIN [Suspect]
     Indication: ATRIAL FIBRILLATION
     Dosage: 0.25 MG; QD; PO
     Route: 048
     Dates: start: 20020409, end: 20080131
  2. DIGOXIN [Suspect]
     Indication: ATRIAL FIBRILLATION
     Dosage: 0.125 MG;QD;PO
     Route: 048
  3. PRINIVIL [Concomitant]
  4. AVANDIA [Concomitant]
  5. COUMADIN [Concomitant]
  6. TRIMOX [Concomitant]
  7. METOPROLOL [Concomitant]
  8. LISINOPRIL [Concomitant]
  9. KENALOG AEROSOL [Concomitant]
  10. METOLAZONE [Concomitant]
  11. INSPRA [Concomitant]
  12. NITROGLYCERIN [Concomitant]
  13. HYDROCHLOROTHIAZIDE [Concomitant]
  14. POTASSIUM [Concomitant]
  15. CHLORHEXIDINE GLUCONATE [Concomitant]
  16. OSMOPREP [Concomitant]
  17. AMIODARONE [Concomitant]
  18. NOVOLIN [Concomitant]
  19. SIMVASTATIN [Concomitant]
  20. GLIPIZIDE [Concomitant]
  21. TOPROL-XL [Concomitant]
  22. SIPRONOLACTONE [Concomitant]
  23. NEXIUM [Concomitant]
  24. OSMOPREP [Concomitant]
  25. METOPROLOL [Concomitant]
  26. AMIODARONE [Concomitant]
  27. NOVOLIN [Concomitant]
  28. AZITHROMYCIN [Concomitant]
  29. AMOXICILLIN [Concomitant]
  30. TRIMOX [Concomitant]
  31. AVANDIA [Concomitant]
  32. OXYCODONE HCL AND ACETAMINOPHEN [Concomitant]
  33. CLOTRIMAZOLE [Concomitant]
  34. KENALOG AEROSOL [Concomitant]
  35. LANTUS [Concomitant]
  36. LEGEND STOOL SOFTENER [Concomitant]
  37. GLUCOVANCE [Concomitant]
  38. ZOCOR [Concomitant]
  39. PRINIVIL [Concomitant]
  40. NYSTOP [Concomitant]
  41. ADVAIR DISKUS 100/50 [Concomitant]
  42. ALLEGRA [Concomitant]
  43. ENALAPRIL MALEATE [Concomitant]
  44. HYDRALAZINE [Concomitant]
  45. CEFTIN [Concomitant]
  46. SUCRALFATE [Concomitant]
  47. TEQUIN [Concomitant]
  48. HYDROPANE [Concomitant]
  49. FLOVENT [Concomitant]
  50. SEREVENT [Concomitant]
  51. PREDNISONE [Concomitant]
  52. GUIATUSS [Concomitant]
  53. LEVAQUIN [Concomitant]
  54. FLOXIN [Concomitant]
  55. PRILOSEC [Concomitant]
  56. COREG [Concomitant]
  57. AMOXIL [Concomitant]
  58. GLYBURIDE [Concomitant]
  59. DIOVAN [Concomitant]
  60. MONOPRIL [Concomitant]
  61. COZAAR [Concomitant]
  62. CEPHALEXIN [Concomitant]
  63. K-DUR [Concomitant]
  64. DIPYRIDAMOLE [Concomitant]
  65. CIPRO [Concomitant]
  66. NIZORAL [Concomitant]
  67. DURICEF [Concomitant]
  68. NORVASC [Concomitant]
  69. MICRONASE [Concomitant]
  70. BENZASHAVE [Concomitant]
  71. CARDIZEM [Concomitant]
  72. HYDROCORTISONE [Concomitant]
  73. HYTONE [Concomitant]
  74. CORGARD [Concomitant]
  75. NITROGLYCERIN [Concomitant]
  76. NITRO-DUR [Concomitant]
  77. NITROSTAT [Concomitant]
  78. TICLID [Concomitant]
  79. HYDROCODONE BITARTRATE AND ACETAMINOPHEN [Concomitant]
  80. ERYTHROCIN LACTOBIONATE [Concomitant]
  81. SULFAMETHOXAZOLE [Concomitant]
  82. ALBUTEROL [Concomitant]
  83. INSULIN [Concomitant]
  84. GLUCOTROL [Concomitant]
  85. ZOCOR [Concomitant]
  86. TOPROL-XL [Concomitant]
  87. COUMADIN [Concomitant]
  88. INSULIN [Concomitant]
  89. POTASSIUM [Concomitant]
  90. LASIX [Concomitant]
  91. AMIODARONE [Concomitant]
  92. METOLAZONE [Concomitant]
  93. PRINIVIL [Concomitant]
  94. GLUCOTROL [Concomitant]
  95. METFORMIN HYDROCHLORIDE [Concomitant]
  96. LASIX [Concomitant]
  97. K-DUR [Concomitant]
  98. INSULIN [Concomitant]
  99. METFORMIN HYDROCHLORIDE [Concomitant]
  100. GLUCOTROL [Concomitant]
  101. TOPROL-XL [Concomitant]
  102. INSPRA [Concomitant]
  103. METOLAZONE [Concomitant]

REACTIONS (42)
  - ANHEDONIA [None]
  - ARRHYTHMIA [None]
  - ATRIAL FIBRILLATION [None]
  - CARCINOID TUMOUR OF THE PROSTATE [None]
  - CARDIAC FAILURE CONGESTIVE [None]
  - CARDIAC MURMUR [None]
  - CARDIO-RESPIRATORY ARREST [None]
  - CARDIOGENIC SHOCK [None]
  - CARDIOMEGALY [None]
  - CONSTIPATION [None]
  - CORONARY ARTERY DISEASE [None]
  - DEPRESSION [None]
  - DIABETES MELLITUS INADEQUATE CONTROL [None]
  - DIARRHOEA [None]
  - DIZZINESS [None]
  - DYSGEUSIA [None]
  - ECONOMIC PROBLEM [None]
  - ELECTROCARDIOGRAM ST-T SEGMENT ABNORMAL [None]
  - EMOTIONAL DISTRESS [None]
  - FALL [None]
  - FATIGUE [None]
  - HEPATOJUGULAR REFLUX [None]
  - HYPERHIDROSIS [None]
  - HYPOKALAEMIA [None]
  - INJURY [None]
  - JUGULAR VEIN DISTENSION [None]
  - LEFT VENTRICULAR DYSFUNCTION [None]
  - MENTAL DISORDER [None]
  - MUSCULAR WEAKNESS [None]
  - MYOCARDIAL INFARCTION [None]
  - OCCULT BLOOD POSITIVE [None]
  - ORTHOPNOEA [None]
  - OXYGEN SATURATION DECREASED [None]
  - PAIN [None]
  - PALPITATIONS [None]
  - PNEUMONIA [None]
  - PROSTATOMEGALY [None]
  - RENAL FAILURE ACUTE [None]
  - RESPIRATORY DISTRESS [None]
  - SOMNOLENCE [None]
  - SYNCOPE [None]
  - WEIGHT DECREASED [None]
